FAERS Safety Report 11645993 (Version 2)
Quarter: 2016Q2

REPORT INFORMATION
  Report Type: Spontaneous
  Country: US (occurrence: US)
  Receive Date: 20151020
  Receipt Date: 20160429
  Transmission Date: 20160815
  Serious: No
  Sender: FDA-Public Use
  Company Number: US-ROCHE-1602454

PATIENT
  Age: 83 Year
  Sex: Female

DRUGS (1)
  1. ESBRIET [Suspect]
     Active Substance: PIRFENIDONE
     Indication: IDIOPATHIC PULMONARY FIBROSIS
     Route: 048
     Dates: start: 20150616

REACTIONS (7)
  - Gastric disorder [Unknown]
  - Dyspepsia [Unknown]
  - Retching [Unknown]
  - Cough [Unknown]
  - Vomiting [Unknown]
  - Weight decreased [Unknown]
  - Rash macular [Unknown]
